FAERS Safety Report 8321660-9 (Version None)
Quarter: 2012Q2

REPORT INFORMATION
  Report Type: 
  Country: None (occurrence: None)
  Receive Date: 20120430
  Receipt Date: 20120418
  Transmission Date: 20120825
  Serious: Yes (Other)
  Sender: FDA-Public Use
  Company Number: JP-FRI-1000030085

PATIENT
  Age: 44 Year
  Sex: Female

DRUGS (4)
  1. ESTAZOLAM [Concomitant]
     Route: 048
  2. LEXOTAN [Concomitant]
     Route: 048
  3. DEPAS [Concomitant]
     Route: 048
  4. LEXAPRO [Suspect]
     Indication: DEPRESSION
     Dosage: 10 MG
     Route: 048
     Dates: start: 20120412, end: 20120412

REACTIONS (1)
  - ANAPHYLACTIC SHOCK [None]
